FAERS Safety Report 15693211 (Version 1)
Quarter: 2018Q4

REPORT INFORMATION
  Report Type: Spontaneous
  Country: GB (occurrence: GB)
  Receive Date: 20181206
  Receipt Date: 20181206
  Transmission Date: 20190205
  Serious: Yes (Other)
  Sender: FDA-Public Use
  Company Number: GB-TEVA-2018-GB-983510

PATIENT
  Age: 59 Year
  Sex: Male

DRUGS (8)
  1. TRAMADOL. [Concomitant]
     Active Substance: TRAMADOL
  2. CLOPIDOGREL [Concomitant]
     Active Substance: CLOPIDOGREL BISULFATE
  3. METFORMIN [Concomitant]
     Active Substance: METFORMIN HYDROCHLORIDE
  4. ASPRIN [Concomitant]
     Active Substance: ASPIRIN
  5. CARVEDILOL. [Suspect]
     Active Substance: CARVEDILOL
     Route: 048
  6. ATORVASTATIN [Concomitant]
     Active Substance: ATORVASTATIN
  7. COCODAMOL [Concomitant]
     Active Substance: ACETAMINOPHEN\CODEINE PHOSPHATE
  8. PANTOPRAZOLE [Concomitant]
     Active Substance: PANTOPRAZOLE

REACTIONS (3)
  - Malaise [Unknown]
  - Electrocardiogram abnormal [Unknown]
  - Extrasystoles [Unknown]
